FAERS Safety Report 20352413 (Version 1)
Quarter: 2022Q1

REPORT INFORMATION
  Report Type: Spontaneous
  Country: US (occurrence: None)
  Receive Date: 20220118
  Receipt Date: 20220118
  Transmission Date: 20220423
  Serious: Yes (Other)
  Sender: FDA-Public Use
  Company Number: None

PATIENT
  Age: 38 Year
  Sex: Male
  Weight: 69.75 kg

DRUGS (2)
  1. PROHANCE [Suspect]
     Active Substance: GADOTERIDOL
     Indication: Magnetic resonance imaging
     Dosage: OTHER QUANTITY : 1 CAPSULE(S);?OTHER FREQUENCY : 1 TIME FOR MRI;?
     Route: 042
     Dates: start: 20210726, end: 20210726
  2. VITAMIN B12 [Concomitant]
     Active Substance: CYANOCOBALAMIN

REACTIONS (3)
  - Alopecia [None]
  - Infusion site pain [None]
  - Fatigue [None]

NARRATIVE: CASE EVENT DATE: 20210727
